FAERS Safety Report 26048445 (Version 1)
Quarter: 2025Q4

REPORT INFORMATION
  Report Type: Spontaneous
  Country: US (occurrence: US)
  Receive Date: 20251114
  Receipt Date: 20251114
  Transmission Date: 20260117
  Serious: Yes (Other)
  Sender: BAYER HEALTHCARE PHARMACEUTICALS INC.
  Company Number: US-BAYER-2025A148728

PATIENT
  Age: 32 Year
  Sex: Male

DRUGS (2)
  1. KOVALTRY [Suspect]
     Active Substance: ANTIHEMOPHILIC FACTOR, HUMAN RECOMBINANT
     Dosage: KOVALTRY 1111/2142 UN INFUSE 3500 UN
     Route: 042
  2. KOVALTRY [Suspect]
     Active Substance: ANTIHEMOPHILIC FACTOR, HUMAN RECOMBINANT
     Dosage: 2 DOSES TO TREAT LEFT CALF BLEED
     Route: 042
     Dates: start: 202510

REACTIONS (1)
  - Muscle haemorrhage [Recovered/Resolved]

NARRATIVE: CASE EVENT DATE: 20251024
